FAERS Safety Report 5118168-0 (Version None)
Quarter: 2006Q4

REPORT INFORMATION
  Report Type: 
  Country: None (occurrence: None)
  Receive Date: 20061002
  Receipt Date: 20060914
  Transmission Date: 20070319
  Serious: Yes (Death, Other)
  Sender: FDA-Public Use
  Company Number: PHFR2006GB02833

PATIENT
  Sex: Female

DRUGS (1)
  1. AREDIA [Suspect]
     Indication: METASTASES TO BONE
     Dosage: 90 MG/DAY
     Route: 065
     Dates: start: 20010501, end: 20041201

REACTIONS (4)
  - FOCAL GLOMERULOSCLEROSIS [None]
  - NEPHROTIC SYNDROME [None]
  - PNEUMONIA [None]
  - RENAL FAILURE [None]
